FAERS Safety Report 13704582 (Version 1)
Quarter: 2017Q2

REPORT INFORMATION
  Report Type: Other
  Country: CA (occurrence: CA)
  Receive Date: 20170630
  Receipt Date: 20170630
  Transmission Date: 20170830
  Serious: Yes (Other)
  Sender: FDA-Public Use
  Company Number: CA-APOTEX-2017AP013383

PATIENT
  Age: 47 Year
  Sex: Female

DRUGS (4)
  1. TECHNETIUM (99MTC) SESTAMIBI [Suspect]
     Active Substance: TECHNETIUM TC-99M SESTAMIBI
     Indication: CARDIAC STRESS TEST
     Dosage: 300 MBQ, QD
     Route: 051
  2. TECHNETIUM (99MTC) SESTAMIBI [Suspect]
     Active Substance: TECHNETIUM TC-99M SESTAMIBI
     Dosage: UNK
     Route: 051
  3. APO-FENTANYL MATRIX [Suspect]
     Active Substance: FENTANYL
     Indication: PRODUCT USED FOR UNKNOWN INDICATION
     Route: 062
  4. OXYCODONE HYDROCHLORIDE W/OXYCODONE TEREPHTHATE [Suspect]
     Active Substance: OXYCODONE HYDROCHLORIDE\OXYCODONE TEREPHTHALATE
     Indication: PRODUCT USED FOR UNKNOWN INDICATION
     Route: 048

REACTIONS (3)
  - Oxygen saturation decreased [Recovered/Resolved]
  - Somnolence [Recovered/Resolved]
  - Malaise [Recovered/Resolved]
